FAERS Safety Report 6772753-9 (Version None)
Quarter: 2010Q2

REPORT INFORMATION
  Report Type: 
  Country: None (occurrence: None)
  Receive Date: 20100616
  Receipt Date: 20100528
  Transmission Date: 20101027
  Serious: Yes (Hospitalization)
  Sender: FDA-Public Use
  Company Number: US-SANOFI-AVENTIS-2010SA034084

PATIENT
  Age: 59 Year
  Sex: Female
  Weight: 93.42 kg

DRUGS (5)
  1. PLAVIX [Suspect]
     Indication: THROMBOSIS PROPHYLAXIS
     Route: 048
     Dates: start: 20100501, end: 20100602
  2. PLAVIX [Suspect]
     Route: 048
     Dates: start: 20100602
  3. LORAZEPAM [Concomitant]
  4. ALBUTEROL [Concomitant]
  5. DEPAKOTE [Concomitant]

REACTIONS (8)
  - CONSTIPATION [None]
  - DEHYDRATION [None]
  - HYPERSENSITIVITY [None]
  - INTESTINAL OBSTRUCTION [None]
  - OFF LABEL USE [None]
  - RASH [None]
  - URTICARIA [None]
  - VOMITING PROJECTILE [None]
